FAERS Safety Report 5931371-2 (Version None)
Quarter: 2008Q4

REPORT INFORMATION
  Report Type: 
  Country: None (occurrence: None)
  Receive Date: 20081027
  Receipt Date: 20081017
  Transmission Date: 20090506
  Serious: Yes (Death, Other)
  Sender: FDA-Public Use
  Company Number: FR-ROCHE-592651

PATIENT
  Sex: Male

DRUGS (7)
  1. RIVOTRIL [Suspect]
     Indication: DRUG USE FOR UNKNOWN INDICATION
     Route: 048
     Dates: start: 20080205, end: 20080218
  2. LEPTICUR [Concomitant]
     Route: 065
     Dates: start: 20080205, end: 20080218
  3. NOZINAN [Concomitant]
     Dosage: DOSE: 100 DROPS Q
     Dates: start: 20080213, end: 20080218
  4. CLOPIXOL [Concomitant]
     Dates: start: 20080208, end: 20080218
  5. TERCIAN [Concomitant]
     Dosage: DOSE: 100 DROPS Q, STRENGTH: 40 MG/ML
     Dates: start: 20080206, end: 20080208
  6. HALDOL [Concomitant]
     Dosage: DOSE: 100 DROPS Q, STRENGTH 2 MG/ML
     Dates: start: 20080205, end: 20080218
  7. TERALITHE [Concomitant]
     Dosage: DRUG REPORTED AS THERALITHE 400
     Dates: start: 20080205, end: 20080218

REACTIONS (6)
  - CARDIO-RESPIRATORY ARREST [None]
  - GASTROINTESTINAL OBSTRUCTION [None]
  - INSOMNIA [None]
  - PYREXIA [None]
  - RENAL DISORDER [None]
  - VOMITING [None]
